FAERS Safety Report 5196947-1 (Version None)
Quarter: 2006Q4

REPORT INFORMATION
  Report Type: 
  Country: None (occurrence: None)
  Receive Date: 20061227
  Receipt Date: 20061213
  Transmission Date: 20070319
  Serious: Yes (Death, Other)
  Sender: FDA-Public Use
  Company Number: 2006154437

PATIENT
  Sex: 0

DRUGS (1)
  1. DELTACORTRIL [Suspect]
     Dosage: ORAL
     Route: 048

REACTIONS (3)
  - INFECTION [None]
  - RENAL TRANSPLANT [None]
  - TRANSPLANT FAILURE [None]
